FAERS Safety Report 4682388-X (Version None)
Quarter: 2005Q2

REPORT INFORMATION
  Report Type: 
  Country: None (occurrence: None)
  Receive Date: 20050602
  Receipt Date: 20050316
  Transmission Date: 20051028
  Serious: No
  Sender: FDA-Public Use
  Company Number: USA050393330

PATIENT
  Sex: Female
  Weight: 50 kg

DRUGS (4)
  1. CYMBALTA [Suspect]
     Dosage: 30 MG DAY
     Dates: start: 20050101
  2. CLONAZEPAM [Concomitant]
  3. TRILEPTAL [Concomitant]
  4. NEURONTIN (GABAPENTIN PFIZER) [Concomitant]

REACTIONS (2)
  - DIARRHOEA [None]
  - ORAL PAIN [None]
